FAERS Safety Report 9348298 (Version 4)
Quarter: 2013Q4

REPORT INFORMATION
  Report Type: Spontaneous
  Country: FR (occurrence: FR)
  Receive Date: 20130614
  Receipt Date: 20131016
  Transmission Date: 20140711
  Serious: Yes (Hospitalization, Other)
  Sender: FDA-Public Use
  Company Number: FR-PFIZER INC-2013172065

PATIENT
  Age: 38 Year
  Sex: Female

DRUGS (4)
  1. SALAZOPYRINE [Suspect]
     Indication: CROHN^S DISEASE
     Dosage: UNK
     Route: 048
     Dates: start: 20130430, end: 20130525
  2. FLUOXETINE HYDROCHLORIDE [Suspect]
     Dosage: UNK
     Route: 048
     Dates: start: 20130530, end: 20130604
  3. RAFTON [Suspect]
     Indication: CROHN^S DISEASE
     Dosage: UNK
     Route: 048
     Dates: start: 20130430, end: 20130523
  4. RAFTON [Suspect]
     Dosage: UNK
     Route: 048
     Dates: start: 20130530, end: 20130604

REACTIONS (11)
  - Pyrexia [Recovered/Resolved]
  - Rash morbilliform [Recovered/Resolved]
  - Anaemia [Recovered/Resolved]
  - Leukopenia [Recovered/Resolved]
  - Thrombocytopenia [Recovered/Resolved]
  - Hepatic enzyme increased [Recovering/Resolving]
  - Drug reaction with eosinophilia and systemic symptoms [Recovered/Resolved]
  - Face oedema [Recovered/Resolved]
  - Exfoliative rash [Recovered/Resolved]
  - Rash papular [Recovered/Resolved]
  - Toxic skin eruption [Unknown]
